FAERS Safety Report 5588857-2 (Version None)
Quarter: 2007Q4

REPORT INFORMATION
  Report Type: 
  Country: None (occurrence: None)
  Receive Date: 20071211
  Receipt Date: 20070908
  Transmission Date: 20080405
  Serious: Yes (Hospitalization)
  Sender: FDA-Public Use
  Company Number: 002#4#2007-00189

PATIENT
  Sex: Male

DRUGS (2)
  1. NEUPRO [Suspect]
     Indication: PARKINSON'S DISEASE
     Dosage: 6MG/24H,1 IN 1 D,TRANSDERMAL
     Route: 062
  2. NEUPRO-2MG/24H [Concomitant]

REACTIONS (1)
  - PSYCHOTIC DISORDER [None]
